FAERS Safety Report 24920486 (Version 1)
Quarter: 2025Q1

REPORT INFORMATION
  Report Type: Spontaneous
  Country: US (occurrence: US)
  Receive Date: 20250204
  Receipt Date: 20250204
  Transmission Date: 20250409
  Serious: No
  Sender: TARO
  Company Number: US-TARO PHARMACEUTICALS USA INC.-2024TAR02673

PATIENT

DRUGS (1)
  1. ADAPALENE [Suspect]
     Active Substance: ADAPALENE
     Indication: Rash
     Dosage: UNK, OD AT NIGHT
     Route: 061
     Dates: start: 2024, end: 202410

REACTIONS (5)
  - Skin irritation [Recovered/Resolved]
  - Skin burning sensation [Recovered/Resolved]
  - Pruritus [Recovered/Resolved]
  - Skin exfoliation [Recovered/Resolved]
  - Dry skin [Recovered/Resolved]

NARRATIVE: CASE EVENT DATE: 20240101
